FAERS Safety Report 21771251 (Version 1)
Quarter: 2022Q4

REPORT INFORMATION
  Report Type: Spontaneous
  Country: CA (occurrence: None)
  Receive Date: 20221223
  Receipt Date: 20221223
  Transmission Date: 20230112
  Serious: Yes (Life-Threatening, Hospitalization)
  Sender: FDA-Public Use
  Company Number: CA-ROCHE-3249234

PATIENT
  Age: 38 Year
  Sex: Male
  Weight: 83 kg

DRUGS (17)
  1. RITUXIMAB [Suspect]
     Active Substance: RITUXIMAB
     Indication: Primary mediastinal large B-cell lymphoma
     Route: 058
  2. ADRIAMYCIN [Suspect]
     Active Substance: DOXORUBICIN HYDROCHLORIDE
     Indication: Primary mediastinal large B-cell lymphoma
     Route: 065
  3. METHOTREXATE [Suspect]
     Active Substance: METHOTREXATE
     Indication: Primary mediastinal large B-cell lymphoma
     Route: 065
  4. CYTOXAN [Suspect]
     Active Substance: CYCLOPHOSPHAMIDE
     Indication: Primary mediastinal large B-cell lymphoma
     Route: 042
  5. ONCOVIN [Suspect]
     Active Substance: VINCRISTINE SULFATE
     Indication: Primary mediastinal large B-cell lymphoma
     Route: 065
  6. VEPESID [Suspect]
     Active Substance: ETOPOSIDE
     Indication: Primary mediastinal large B-cell lymphoma
     Route: 065
  7. FILGRASTIM [Concomitant]
     Active Substance: FILGRASTIM
  8. SULFAMETHOXAZOLE\TRIMETHOPRIM [Concomitant]
     Active Substance: SULFAMETHOXAZOLE\TRIMETHOPRIM
  9. CHOLECALCIFEROL [Concomitant]
     Active Substance: CHOLECALCIFEROL
  10. ELIQUIS [Concomitant]
     Active Substance: APIXABAN
  11. LORAZEPAM [Concomitant]
     Active Substance: LORAZEPAM
     Route: 065
  12. METOCLOPRAMIDE [Concomitant]
     Active Substance: METOCLOPRAMIDE
  13. NYSTATIN [Concomitant]
     Active Substance: NYSTATIN
     Dosage: 100000UNIT/ML USP
     Route: 048
  14. ONDANSETRON [Concomitant]
     Active Substance: ONDANSETRON
  15. PANTOPRAZOLE [Concomitant]
     Active Substance: PANTOPRAZOLE
  16. ALBUTEROL [Concomitant]
     Active Substance: ALBUTEROL
  17. SENNOSIDES [Concomitant]
     Active Substance: SENNOSIDES

REACTIONS (2)
  - Febrile neutropenia [Recovered/Resolved]
  - Transfusion [Recovered/Resolved]
